FAERS Safety Report 8067827-9 (Version None)
Quarter: 2012Q1

REPORT INFORMATION
  Report Type: 
  Country: None (occurrence: None)
  Receive Date: 20120124
  Receipt Date: 20120117
  Transmission Date: 20120608
  Serious: No
  Sender: FDA-Public Use
  Company Number: US-B.I. PHARMACEUTICALS,INC./RIDGEFIELD-2011-BP-27904BP

PATIENT
  Sex: Female

DRUGS (5)
  1. LORAZEPAM [Concomitant]
     Dosage: 1.5 MG
  2. DOXAZOSIN MESYLATE [Concomitant]
     Dosage: 2 MG
  3. DIOVAN [Concomitant]
     Dosage: 320 MG
  4. POT CHLORIDE [Concomitant]
     Dosage: 20 MEQ
  5. CATAPRES-TTS-1 [Suspect]
     Indication: HYPERTENSION
     Route: 062

REACTIONS (3)
  - APPLICATION SITE ERYTHEMA [None]
  - HEART RATE IRREGULAR [None]
  - DEVICE MALFUNCTION [None]
